FAERS Safety Report 7024409-5 (Version None)
Quarter: 2010Q4

REPORT INFORMATION
  Report Type: 
  Country: None (occurrence: None)
  Receive Date: 20101001
  Receipt Date: 20100923
  Transmission Date: 20110411
  Serious: No
  Sender: FDA-Public Use
  Company Number: US-B.I. PHARMACEUTICALS,INC./RIDGEFIELD-2010-BP-10801BP

PATIENT
  Age: 44 Year
  Sex: Female

DRUGS (1)
  1. MOBIC [Suspect]
     Indication: ARTHRALGIA
     Dosage: 7.5 MG
     Route: 048
     Dates: start: 20100908, end: 20100910

REACTIONS (3)
  - CHEILITIS [None]
  - LIP PAIN [None]
  - LIP SWELLING [None]
